FAERS Safety Report 6815590-9 (Version None)
Quarter: 2010Q3

REPORT INFORMATION
  Report Type: 
  Country: None (occurrence: None)
  Receive Date: 20100702
  Receipt Date: 20100624
  Transmission Date: 20110219
  Serious: Yes (Hospitalization, Other)
  Sender: FDA-Public Use
  Company Number: US-ROCHE-695927

PATIENT
  Sex: Male
  Weight: 90.7 kg

DRUGS (8)
  1. ACCUTANE [Suspect]
     Route: 065
     Dates: start: 20010524, end: 20011001
  2. ACCUTANE [Suspect]
     Dosage: FOR FIRST SEVERAL WEEKS
     Route: 065
     Dates: start: 20020612
  3. ACCUTANE [Suspect]
     Dosage: DOSE INCREASED
     Route: 065
     Dates: start: 20020711
  4. ACCUTANE [Suspect]
     Dosage: 40 MG MORNING AND 60 MG NIGHT
     Route: 065
     Dates: start: 20020926
  5. ACCUTANE [Suspect]
     Dosage: DOSE DECREASED
     Route: 065
     Dates: start: 20021119
  6. ACCUTANE [Suspect]
     Dosage: DOSE DECREASED
     Route: 065
     Dates: start: 20021219, end: 20030201
  7. AMOXICILLIN [Concomitant]
  8. DIFFERIN [Concomitant]
     Dates: start: 20010124

REACTIONS (11)
  - BLOOD CHOLESTEROL INCREASED [None]
  - COLITIS ULCERATIVE [None]
  - CROHN'S DISEASE [None]
  - DEEP VEIN THROMBOSIS [None]
  - DEPRESSION [None]
  - FATIGUE [None]
  - INFLAMMATORY BOWEL DISEASE [None]
  - INTESTINAL OBSTRUCTION [None]
  - LIP DRY [None]
  - PHARYNGITIS [None]
  - SINUSITIS [None]
